FAERS Safety Report 4959758-5 (Version None)
Quarter: 2006Q1

REPORT INFORMATION
  Report Type: 
  Country: None (occurrence: None)
  Receive Date: 20060324
  Receipt Date: 20060313
  Transmission Date: 20060701
  Serious: Yes (Other)
  Sender: FDA-Public Use
  Company Number: 2006035507

PATIENT
  Age: 46 Year
  Sex: Male
  Weight: 83.9154 kg

DRUGS (4)
  1. GABAPENTIN [Suspect]
     Indication: NEUROPATHY PERIPHERAL
     Dosage: 600 MG (600 MG, 1 IN 1 D), ORAL
     Route: 048
     Dates: start: 20050901
  2. GLYBURIDE [Concomitant]
  3. ALL OTHER THERAPEUTIC PRODUCTS (ALL OTHER THERAPEUTIC PRODUCTS) [Concomitant]
  4. PLAVIX [Concomitant]

REACTIONS (4)
  - INADEQUATE ANALGESIA [None]
  - INCORRECT DOSE ADMINISTERED [None]
  - SELF-MEDICATION [None]
  - TREATMENT NONCOMPLIANCE [None]
